FAERS Safety Report 6639505-1 (Version None)
Quarter: 2010Q1

REPORT INFORMATION
  Report Type: 
  Country: None (occurrence: None)
  Receive Date: 20100318
  Receipt Date: 20100303
  Transmission Date: 20100710
  Serious: Yes (Hospitalization, Other)
  Sender: FDA-Public Use
  Company Number: US-ELI_LILLY_AND_COMPANY-US201003001981

PATIENT
  Sex: Female

DRUGS (10)
  1. FORTEO [Suspect]
     Indication: OSTEOPOROSIS
     Dosage: 20 UG, DAILY (1/D)
     Dates: start: 20090401
  2. STALEVO 100 [Concomitant]
     Indication: PARKINSON'S DISEASE
  3. MIRAPEX [Concomitant]
  4. METHOTREXATE [Concomitant]
  5. VITAMIN D [Concomitant]
  6. VITAMIN C [Concomitant]
  7. MULTI-VITAMIN [Concomitant]
  8. GLUCOPHAGE [Concomitant]
  9. VITAMIN B12 /00056201/ [Concomitant]
     Dosage: UNK, MONTHLY (1/M)
     Route: 058
  10. BABY ASPIRIN [Concomitant]

REACTIONS (6)
  - FALL [None]
  - FEMUR FRACTURE [None]
  - GAIT DISTURBANCE [None]
  - MEMORY IMPAIRMENT [None]
  - MUSCLE STRAIN [None]
  - PAIN IN EXTREMITY [None]
